FAERS Safety Report 7354794-6 (Version None)
Quarter: 2011Q1

REPORT INFORMATION
  Report Type: 
  Country: None (occurrence: None)
  Receive Date: 20110316
  Receipt Date: 20100910
  Transmission Date: 20110831
  Serious: No
  Sender: FDA-Public Use
  Company Number: US-KINGPHARMUSA00001-K201001142

PATIENT
  Sex: Female

DRUGS (2)
  1. ALTACE [Suspect]
     Indication: HYPERTENSION
     Dosage: 1.25 MG, UNK
     Route: 048
     Dates: start: 20040101
  2. ALTACE [Suspect]
     Dosage: 1.25 MG, QOD
     Route: 048

REACTIONS (1)
  - BLOOD PRESSURE DIASTOLIC DECREASED [None]
